FAERS Safety Report 21914400 (Version 1)
Quarter: 2023Q1

REPORT INFORMATION
  Report Type: Spontaneous
  Country: UM (occurrence: US)
  Receive Date: 20230126
  Receipt Date: 20230126
  Transmission Date: 20230417
  Serious: Yes (Other)
  Sender: FDA-Public Use
  Company Number: UM-CELLTRION INC.-2023US001379

PATIENT

DRUGS (1)
  1. TRUXIMA [Suspect]
     Active Substance: RITUXIMAB-ABBS
     Indication: Dermatomyositis
     Dosage: THERAPY IS PLANNED OR PATIENT FOR 1/16/2023 AND 1/30/2023 FOR 1000MG WEEK 0 AND 2 REPEAT Q 6M
     Dates: start: 20230116

REACTIONS (2)
  - Dermatomyositis [Unknown]
  - Off label use [Unknown]

NARRATIVE: CASE EVENT DATE: 20230101
